FAERS Safety Report 11982485 (Version 2)
Quarter: 2016Q1

REPORT INFORMATION
  Report Type: Report from Study
  Country: US (occurrence: US)
  Receive Date: 20160201
  Receipt Date: 20160218
  Transmission Date: 20160526
  Serious: Yes (Other)
  Sender: FDA-Public Use
  Company Number: US-GILEAD-2016-0195084

PATIENT
  Age: 24 Year
  Sex: Female

DRUGS (1)
  1. AMBRISENTAN [Suspect]
     Active Substance: AMBRISENTAN
     Indication: HEART DISEASE CONGENITAL
     Dosage: 10 MG, UNK
     Route: 065
     Dates: start: 20160107, end: 20160109

REACTIONS (3)
  - Fall [Unknown]
  - Presyncope [Unknown]
  - Pain [Unknown]

NARRATIVE: CASE EVENT DATE: 20160109
